FAERS Safety Report 14320452 (Version 1)
Quarter: 2017Q4

REPORT INFORMATION
  Report Type: Spontaneous
  Country: US (occurrence: US)
  Receive Date: 20171222
  Receipt Date: 20171222
  Transmission Date: 20180321
  Serious: No
  Sender: FDA-Public Use
  Company Number: US-HALOZYME THERAPEUTICS, INC.-2017-US-HYL-00651

PATIENT
  Age: 42 Year
  Sex: Female

DRUGS (3)
  1. NORMAL SALINE [Concomitant]
     Active Substance: SODIUM CHLORIDE
     Dosage: UNK
     Dates: start: 20170421, end: 20170505
  2. HYLENEX RECOMBINANT [Suspect]
     Active Substance: HYALURONIDASE (HUMAN RECOMBINANT)
     Indication: POST PROCEDURAL COMPLICATION
     Dosage: 4 ML, TWICE AS TWO SEPARATE DOSES
     Route: 058
     Dates: start: 20170421, end: 20170505
  3. LIDOCAINE. [Concomitant]
     Active Substance: LIDOCAINE
     Dosage: UNK
     Dates: start: 20170421, end: 20170505

REACTIONS (5)
  - Dehydration [Not Recovered/Not Resolved]
  - Nasal dryness [Not Recovered/Not Resolved]
  - Panic attack [Not Recovered/Not Resolved]
  - Dry mouth [Not Recovered/Not Resolved]
  - Dry eye [Not Recovered/Not Resolved]

NARRATIVE: CASE EVENT DATE: 20170421
